FAERS Safety Report 21963951 (Version 3)
Quarter: 2023Q1

REPORT INFORMATION
  Report Type: Spontaneous
  Country: CO (occurrence: CO)
  Receive Date: 20230207
  Receipt Date: 20230228
  Transmission Date: 20230418
  Serious: Yes (Other)
  Sender: FDA-Public Use
  Company Number: CO-BAYER-2023A014336

PATIENT
  Age: 37 Year
  Sex: Female

DRUGS (5)
  1. NEXAVAR [Suspect]
     Active Substance: SORAFENIB
     Indication: Thyroid cancer metastatic
     Dosage: 800 MG, BID
     Route: 048
     Dates: start: 20230115, end: 20230205
  2. CALCITRIOL [Concomitant]
     Active Substance: CALCITRIOL
     Indication: Thyroid cancer
     Dosage: UNK
     Dates: start: 20230115
  3. CALCIUM CARBONATE [Concomitant]
     Active Substance: CALCIUM CARBONATE
     Indication: Thyroid cancer
     Dosage: UNK
     Dates: start: 20230115
  4. LEVOTHYROXINE [Concomitant]
     Active Substance: LEVOTHYROXINE
     Indication: Thyroid cancer
     Dosage: UNK
     Dates: start: 20230115
  5. PREGABALIN [Concomitant]
     Active Substance: PREGABALIN
     Indication: Thyroid cancer
     Dosage: UNK
     Dates: start: 20230115

REACTIONS (16)
  - Wound [Not Recovered/Not Resolved]
  - Rash [Not Recovered/Not Resolved]
  - Tracheostomy [Recovering/Resolving]
  - Pyrexia [Recovering/Resolving]
  - Headache [Not Recovered/Not Resolved]
  - Arthralgia [Recovering/Resolving]
  - Fatigue [Recovering/Resolving]
  - Epistaxis [None]
  - Overdose [None]
  - Hypersensitivity [None]
  - Bone pain [None]
  - Feeding disorder [None]
  - Tongue ulceration [None]
  - Alopecia [None]
  - Dry skin [None]
  - Skin lesion [None]

NARRATIVE: CASE EVENT DATE: 20230101
